FAERS Safety Report 11975557 (Version 1)
Quarter: 2016Q1

REPORT INFORMATION
  Report Type: Report from Study
  Country: CO (occurrence: CO)
  Receive Date: 20160129
  Receipt Date: 20160129
  Transmission Date: 20160526
  Serious: Yes (Other)
  Sender: FDA-Public Use
  Company Number: CO-ROCHE-1702415

PATIENT
  Sex: Female

DRUGS (1)
  1. RITUXIMAB [Suspect]
     Active Substance: RITUXIMAB
     Indication: RHEUMATOID ARTHRITIS
     Route: 042
     Dates: start: 20160107

REACTIONS (4)
  - Nausea [Recovered/Resolved]
  - Myalgia [Recovered/Resolved]
  - Transaminases abnormal [Recovered/Resolved]
  - Dizziness [Recovered/Resolved]
